FAERS Safety Report 15656663 (Version 1)
Quarter: 2018Q4

REPORT INFORMATION
  Report Type: Spontaneous
  Country: ZA (occurrence: ZA)
  Receive Date: 20181126
  Receipt Date: 20181126
  Transmission Date: 20190205
  Serious: Yes (Hospitalization)
  Sender: FDA-Public Use
  Company Number: ZA-PFIZER INC-2018467014

PATIENT
  Age: 84 Year
  Sex: Male

DRUGS (10)
  1. NORMISON [TEMAZEPAM] [Suspect]
     Active Substance: TEMAZEPAM
     Dosage: 20 MG, UNK
  2. TEGRETOL XR [Suspect]
     Active Substance: CARBAMAZEPINE
     Dosage: 200 MG, UNK
  3. FLOMAX [MORNIFLUMATE] [Suspect]
     Active Substance: MORNIFLUMATE
     Dosage: 0.4 MG, UNK
  4. ADVANTAN [Suspect]
     Active Substance: METHYLPREDNISOLONE ACEPONATE
     Dosage: 1 MG, UNK
  5. FEDALOC [Suspect]
     Active Substance: NIFEDIPINE
     Dosage: 30 MG, UNK
  6. VESICARE [Suspect]
     Active Substance: SOLIFENACIN SUCCINATE
     Dosage: 5 MG, UNK
  7. ASPAVOR [Suspect]
     Active Substance: ATORVASTATIN
     Indication: BLOOD CHOLESTEROL
     Dosage: 10 MG, DAILY
  8. RISPERLET [Suspect]
     Active Substance: RISPERIDONE
     Dosage: 0.5 MG, UNK
  9. CARDICOR [Suspect]
     Active Substance: BISOPROLOL
     Dosage: 2.5 MG, UNK
  10. PREXUM PLUS [INDAPAMIDE;PERINDOPRIL] [Suspect]
     Active Substance: INDAPAMIDE\PERINDOPRIL
     Dosage: 4/1.25 MG

REACTIONS (2)
  - Blood sodium decreased [Unknown]
  - Blood potassium decreased [Unknown]
